FAERS Safety Report 9659185 (Version 2)
Quarter: 2014Q1

REPORT INFORMATION
  Report Type: Spontaneous
  Country: US (occurrence: US)
  Receive Date: 20131031
  Receipt Date: 20140109
  Transmission Date: 20141002
  Serious: No
  Sender: FDA-Public Use
  Company Number: US-009507513-1310USA004424

PATIENT
  Sex: 0

DRUGS (1)
  1. STERILE DILUENT [Suspect]
     Dosage: UNK
     Route: 058
     Dates: start: 20130930

REACTIONS (3)
  - Incorrect product storage [Unknown]
  - Wrong technique in drug usage process [Unknown]
  - No adverse event [Unknown]
